FAERS Safety Report 7632619-9 (Version None)
Quarter: 2011Q3

REPORT INFORMATION
  Report Type: 
  Country: None (occurrence: None)
  Receive Date: 20110725
  Receipt Date: 20101101
  Transmission Date: 20111222
  Serious: No
  Sender: FDA-Public Use
  Company Number: US-BRISTOL-MYERS SQUIBB COMPANY-15361215

PATIENT
  Age: 75 Year
  Sex: Female
  Weight: 61 kg

DRUGS (4)
  1. BONIVA [Concomitant]
  2. METOPROLOL TARTRATE [Concomitant]
  3. COUMADIN [Suspect]
     Dates: start: 20100807
  4. LOPRESSOR [Suspect]

REACTIONS (4)
  - DENTAL CARIES [None]
  - JOINT INJURY [None]
  - TOOTHACHE [None]
  - DIZZINESS [None]
